FAERS Safety Report 23465797 (Version 1)
Quarter: 2024Q1

REPORT INFORMATION
  Report Type: Spontaneous
  Country: CA (occurrence: CA)
  Receive Date: 20240201
  Receipt Date: 20240201
  Transmission Date: 20240409
  Serious: Yes (Other)
  Sender: FDA-Public Use
  Company Number: CA-PFIZER INC-202400028537

PATIENT
  Age: 69 Year
  Sex: Female

DRUGS (4)
  1. DACARBAZINE [Suspect]
     Active Substance: DACARBAZINE
     Indication: Neoplasm malignant
     Dosage: UNK
     Route: 041
  2. BLEOMYCIN SULFATE [Concomitant]
     Active Substance: BLEOMYCIN SULFATE
  3. DOXORUBICIN HYDROCHLORIDE [Concomitant]
     Active Substance: DOXORUBICIN HYDROCHLORIDE
  4. VINBLASTINE SULFATE [Concomitant]
     Active Substance: VINBLASTINE SULFATE

REACTIONS (5)
  - Chills [Unknown]
  - Hypertension [Unknown]
  - Nasopharyngitis [Unknown]
  - Oxygen saturation decreased [Unknown]
  - Tachypnoea [Unknown]
